FAERS Safety Report 5337363-9 (Version None)
Quarter: 2007Q2

REPORT INFORMATION
  Report Type: 
  Country: None (occurrence: None)
  Receive Date: 20070529
  Receipt Date: 20070514
  Transmission Date: 20071010
  Serious: Yes (Other)
  Sender: FDA-Public Use
  Company Number: US-SHR-US-2007-005661

PATIENT
  Age: 38 Year
  Sex: Female
  Weight: 87.075 kg

DRUGS (9)
  1. BETASERON [Suspect]
     Indication: RELAPSING-REMITTING MULTIPLE SCLEROSIS
     Dosage: 8 MIU, EVERY 2D
     Route: 058
     Dates: start: 20060203
  2. FIORICET [Concomitant]
     Indication: HEADACHE
     Dosage: 1 TAB(S), UNK
     Route: 048
     Dates: start: 20050301
  3. LYRICA [Concomitant]
     Dosage: 75 MG, 2X/DAY
     Route: 048
     Dates: start: 20070101
  4. FLEXERIL [Concomitant]
     Dosage: 10 MG, 2X/DAY
     Route: 048
     Dates: start: 20060601
  5. PROZAC [Concomitant]
     Indication: DEPRESSION
     Dosage: 40 MG/D, UNK
     Route: 048
     Dates: start: 20060601
  6. DURAGESIC-100 [Concomitant]
     Indication: PAIN
     Dosage: 25 MG, EVERY 3D
     Route: 061
     Dates: start: 20070301
  7. NAPROXEN [Concomitant]
     Dosage: 500 MG, 2X/DAY
     Route: 048
     Dates: start: 20060601
  8. AMANTADINE HCL [Concomitant]
     Dosage: 100 MG/D, UNK
     Route: 048
     Dates: start: 20060601
  9. VICODIN ES [Concomitant]
     Indication: PAIN
     Dosage: UNK, UNK
     Route: 048
     Dates: start: 20060601

REACTIONS (2)
  - AMNESIA [None]
  - RAYNAUD'S PHENOMENON [None]
